FAERS Safety Report 23671398 (Version 1)
Quarter: 2024Q1

REPORT INFORMATION
  Report Type: Report from Study
  Country: US (occurrence: US)
  Receive Date: 20240326
  Receipt Date: 20240326
  Transmission Date: 20240410
  Serious: Yes (Hospitalization)
  Sender: FDA-Public Use
  Company Number: US-ABBVIE-5501033

PATIENT
  Age: 33 Year
  Sex: Male
  Weight: 61 kg

DRUGS (1)
  1. RINVOQ [Suspect]
     Active Substance: UPADACITINIB
     Indication: Psoriatic arthropathy
     Route: 048
     Dates: start: 20230504

REACTIONS (6)
  - Transient ischaemic attack [Recovered/Resolved]
  - Transient ischaemic attack [Recovered/Resolved with Sequelae]
  - Pallor [Unknown]
  - Hypoaesthesia [Recovered/Resolved]
  - Skin warm [Unknown]
  - Paralysis [Unknown]

NARRATIVE: CASE EVENT DATE: 20231001
